FAERS Safety Report 8631404 (Version 6)
Quarter: 2013Q4

REPORT INFORMATION
  Report Type: Report from Study
  Country: DE (occurrence: DE)
  Receive Date: 20120622
  Receipt Date: 20131108
  Transmission Date: 20140711
  Serious: Yes (Death, Life-Threatening, Hospitalization)
  Sender: FDA-Public Use
  Company Number: PHHO2012DE009285

PATIENT
  Sex: 0

DRUGS (4)
  1. STI571 [Suspect]
     Indication: ACUTE LYMPHOCYTIC LEUKAEMIA
     Dosage: 400 MG, QD
     Route: 065
     Dates: start: 20120105, end: 20120220
  2. STI571 [Suspect]
     Dosage: 300 MG, QD
     Route: 065
     Dates: start: 20120820, end: 20120903
  3. CICLOSPORIN [Suspect]
     Indication: IMMUNOSUPPRESSION
     Dosage: UNK
     Dates: start: 20111023, end: 20120418
  4. EVEROLIMUS [Suspect]

REACTIONS (5)
  - Epstein-Barr virus infection [Fatal]
  - Non-Hodgkin^s lymphoma [Fatal]
  - Second primary malignancy [Fatal]
  - Retinal vasculitis [Recovered/Resolved]
  - Septic shock [Fatal]
